FAERS Safety Report 14099683 (Version 3)
Quarter: 2018Q2

REPORT INFORMATION
  Report Type: Spontaneous
  Country: FR (occurrence: FR)
  Receive Date: 20171017
  Receipt Date: 20180619
  Transmission Date: 20180711
  Serious: Yes (Other)
  Sender: FDA-Public Use
  Company Number: FR-MERCK KGAA-2030354

PATIENT
  Age: 52 Year
  Sex: Female
  Weight: 57 kg

DRUGS (7)
  1. NOVOTHYROX [Suspect]
     Active Substance: LEVOTHYROXINE SODIUM
     Indication: HYPOTHYROIDISM
     Route: 048
     Dates: start: 20170523, end: 20170902
  2. ROCALTROL [Concomitant]
     Active Substance: CALCITRIOL
  3. UTROGESTAN [Concomitant]
     Active Substance: PROGESTERONE
  4. NOVOTHYROX [Suspect]
     Active Substance: LEVOTHYROXINE SODIUM
     Route: 048
  5. NOVOTHYROX [Suspect]
     Active Substance: LEVOTHYROXINE SODIUM
     Route: 048
     Dates: start: 20170523, end: 20170902
  6. NOVOTHYROX [Suspect]
     Active Substance: LEVOTHYROXINE SODIUM
     Route: 048
  7. ESTREVA [Concomitant]
     Active Substance: ESTRADIOL
     Route: 058

REACTIONS (20)
  - Headache [None]
  - Tachycardia [Recovered/Resolved]
  - Blood thyroid stimulating hormone normal [Recovered/Resolved]
  - Fatigue [None]
  - Aggression [None]
  - Depression [Recovered/Resolved]
  - Impaired work ability [None]
  - Urine calcium increased [Not Recovered/Not Resolved]
  - Asthenia [Recovered/Resolved]
  - Irritability [Recovered/Resolved]
  - Insomnia [Recovering/Resolving]
  - Paraesthesia [None]
  - Urine output increased [None]
  - Terminal insomnia [None]
  - Feeling abnormal [None]
  - Personal relationship issue [Not Recovered/Not Resolved]
  - Confusional state [None]
  - Negative thoughts [None]
  - Loss of personal independence in daily activities [None]
  - Myalgia [Recovered/Resolved]

NARRATIVE: CASE EVENT DATE: 2017
